FAERS Safety Report 5648088-4 (Version None)
Quarter: 2008Q1

REPORT INFORMATION
  Report Type: 
  Country: None (occurrence: None)
  Receive Date: 20080229
  Receipt Date: 20080229
  Transmission Date: 20080703
  Serious: Yes (Hospitalization)
  Sender: FDA-Public Use
  Company Number: None

PATIENT
  Sex: Female
  Weight: 90 kg

DRUGS (8)
  1. TEMOZOLOMIDE [Suspect]
     Indication: SARCOMA
     Dosage: 190 MG ONE DOSE PO
     Route: 048
     Dates: start: 20080220
  2. VIRAPAMIL [Concomitant]
  3. DIOVAN [Concomitant]
  4. PAXIL [Concomitant]
  5. VYTORIN [Concomitant]
  6. TOPROL-XL [Concomitant]
  7. LANTUS [Concomitant]
  8. GLIMEPIRIDE [Concomitant]

REACTIONS (6)
  - BLOOD CREATININE INCREASED [None]
  - BLOOD UREA INCREASED [None]
  - HYPOGLYCAEMIA [None]
  - HYPOTENSION [None]
  - HYPOVOLAEMIA [None]
  - MALNUTRITION [None]
